FAERS Safety Report 8955978 (Version 1)
Quarter: 2012Q4

REPORT INFORMATION
  Report Type: 
  Country: FR (occurrence: FR)
  Receive Date: 20121210
  Receipt Date: 20121210
  Transmission Date: 20130627
  Serious: Yes (Life-Threatening, Other)
  Sender: FDA-Public Use
  Company Number: FR-ELI_LILLY_AND_COMPANY-FR201211008000

PATIENT
  Age: 46 Year
  Sex: Female
  Weight: 49 kg

DRUGS (4)
  1. ZYPREXA [Suspect]
     Dosage: 5 mg, bid
     Route: 048
     Dates: start: 20080625, end: 20121001
  2. IKARAN [Concomitant]
     Dosage: 5 mg, bid
     Dates: start: 20080826
  3. DEPAKINE CHRONO [Concomitant]
     Dosage: 500 mg, bid
     Dates: start: 20080326
  4. ORAL CONTRACEPTIVE NOS [Concomitant]

REACTIONS (3)
  - Peripheral artery thrombosis [Recovered/Resolved with Sequelae]
  - Peripheral ischaemia [Recovered/Resolved with Sequelae]
  - Embolism [Recovered/Resolved with Sequelae]
